FAERS Safety Report 25529350 (Version 1)
Quarter: 2025Q3

REPORT INFORMATION
  Report Type: Spontaneous
  Country: US (occurrence: None)
  Receive Date: 20250707
  Receipt Date: 20250707
  Transmission Date: 20251021
  Serious: Yes (Other)
  Sender: FDA-CTU
  Company Number: None

PATIENT
  Age: 56 Year
  Sex: Female
  Weight: 90.9 kg

DRUGS (11)
  1. AMOXICILLIN AND CLAVULANATE POTASSIUM [Suspect]
     Active Substance: AMOXICILLIN\CLAVULANATE POTASSIUM
     Indication: Diverticulitis
     Dosage: OTHER QUANTITY : 1 TABLET(S);?FREQUENCY : TWICE A DAY;?
     Route: 048
     Dates: start: 20250702, end: 20250704
  2. SPIRONOLACTONE [Concomitant]
     Active Substance: SPIRONOLACTONE
  3. DULOXETONE HCL [Concomitant]
  4. LEVOTHYROXINE [Concomitant]
     Active Substance: LEVOTHYROXINE
  5. VITAMINS [Concomitant]
     Active Substance: VITAMINS
  6. VITAMIN D [Concomitant]
     Active Substance: VITAMIN D NOS
  7. FISH OIL [Concomitant]
     Active Substance: FISH OIL
  8. BERBERINE [Concomitant]
     Active Substance: BERBERINE
  9. PROBIOTIC DAILY [Concomitant]
  10. Prebiotics [Concomitant]
  11. LYSINE [Suspect]
     Active Substance: LYSINE

REACTIONS (6)
  - Nausea [None]
  - Diarrhoea [None]
  - Abdominal discomfort [None]
  - Flatulence [None]
  - Abdominal distension [None]
  - Therapy cessation [None]

NARRATIVE: CASE EVENT DATE: 20250704
